FAERS Safety Report 8621333-9 (Version None)
Quarter: 2012Q3

REPORT INFORMATION
  Report Type: 
  Country: None (occurrence: None)
  Receive Date: 20120824
  Receipt Date: 20120816
  Transmission Date: 20120928
  Serious: Yes (Hospitalization, Other)
  Sender: FDA-Public Use
  Company Number: CN-ROCHE-1104610

PATIENT
  Sex: Male
  Weight: 60 kg

DRUGS (1)
  1. XELODA [Suspect]
     Indication: GASTRIC CANCER
     Route: 048
     Dates: start: 20090811, end: 20090823

REACTIONS (3)
  - PYREXIA [None]
  - WHITE BLOOD CELL COUNT DECREASED [None]
  - METASTASES TO BONE [None]
